FAERS Safety Report 4522476-1 (Version None)
Quarter: 2004Q4

REPORT INFORMATION
  Report Type: 
  Country: None (occurrence: None)
  Receive Date: 20041207
  Receipt Date: 20041124
  Transmission Date: 20050328
  Serious: Yes (Hospitalization)
  Sender: FDA-Public Use
  Company Number: KII-2004-0014114

PATIENT
  Age: 41 Year
  Sex: Male

DRUGS (12)
  1. OXYCONTIN [Suspect]
     Indication: PAIN
     Dosage: ORAL
     Route: 048
  2. HYDROMORPHONE HYDROCHLORIDE [Suspect]
     Indication: PAIN
     Dosage: ORAL
     Route: 048
  3. OTHER HYPNOTICS AND SEDATIVES() [Suspect]
     Dosage: SEE TEXT, ORAL
     Route: 048
  4. ANTIEPILEPTICS [Concomitant]
  5. TOPROL-XL [Concomitant]
  6. ANTINEOPLASTIC AGENTS [Concomitant]
  7. ANTIHISTAMINES FOR SYSTEMIC USE [Concomitant]
  8. ANTIDEPRESSANTS [Concomitant]
  9. ACETYLSALICYLIC ACID W/PROPOXYPHENE [Concomitant]
  10. ANTIINFLAMMATORY / ANTIRHEUMATIC PRODUCTS [Concomitant]
  11. ALLOPURINOL [Concomitant]
  12. ENBREL [Concomitant]

REACTIONS (12)
  - AGITATION [None]
  - BLOOD UREA ABNORMAL [None]
  - CONFUSIONAL STATE [None]
  - DRUG SCREEN POSITIVE [None]
  - ELECTROCARDIOGRAM QT CORRECTED INTERVAL PROLONGED [None]
  - HALLUCINATION [None]
  - HYPERHIDROSIS [None]
  - HYPERSOMNIA [None]
  - INSOMNIA [None]
  - MEDICATION ERROR [None]
  - TACHYCARDIA [None]
  - TREATMENT NONCOMPLIANCE [None]
